FAERS Safety Report 9753162 (Version 2)
Quarter: 2015Q3

REPORT INFORMATION
  Report Type: Spontaneous
  Country: US (occurrence: US)
  Receive Date: 20131213
  Receipt Date: 20150805
  Transmission Date: 20151125
  Serious: No
  Sender: FDA-Public Use
  Company Number: US-GILEAD-2010-0026787

PATIENT
  Age: 64 Year
  Sex: Male
  Weight: 88.45 kg

DRUGS (17)
  1. LASIX [Concomitant]
     Active Substance: FUROSEMIDE
  2. LOVASTATIN. [Concomitant]
     Active Substance: LOVASTATIN
  3. PRINIVIL [Concomitant]
     Active Substance: LISINOPRIL
  4. ALBUTEROL. [Concomitant]
     Active Substance: ALBUTEROL
  5. COREG [Concomitant]
     Active Substance: CARVEDILOL
  6. GLUCOPHAGE [Concomitant]
     Active Substance: METFORMIN HYDROCHLORIDE
  7. ADVAIR HFA [Concomitant]
     Active Substance: FLUTICASONE PROPIONATE\SALMETEROL XINAFOATE
  8. SINGULAIR [Concomitant]
     Active Substance: MONTELUKAST SODIUM
  9. TYLENOL [Concomitant]
     Active Substance: ACETAMINOPHEN
  10. PRILOSEC [Concomitant]
     Active Substance: OMEPRAZOLE MAGNESIUM
  11. VIAGRA [Concomitant]
     Active Substance: SILDENAFIL CITRATE
  12. PREVACID [Concomitant]
     Active Substance: LANSOPRAZOLE
  13. LETAIRIS [Suspect]
     Active Substance: AMBRISENTAN
     Indication: PULMONARY ARTERIAL HYPERTENSION
     Route: 048
     Dates: start: 20090305
  14. CLARITIN [Concomitant]
     Active Substance: LORATADINE
  15. LEVAQUIN [Concomitant]
     Active Substance: LEVOFLOXACIN
  16. SPIRIVA [Concomitant]
     Active Substance: TIOTROPIUM BROMIDE MONOHYDRATE
  17. VENTOLIN [Concomitant]
     Active Substance: ALBUTEROL SULFATE

REACTIONS (1)
  - Peripheral swelling [Unknown]
